FAERS Safety Report 12477786 (Version 1)
Quarter: 2016Q2

REPORT INFORMATION
  Report Type: Spontaneous
  Country: DE (occurrence: DE)
  Receive Date: 20160617
  Receipt Date: 20160617
  Transmission Date: 20160815
  Serious: Yes (Other)
  Sender: FDA-Public Use
  Company Number: DE-PFIZER INC-2016296359

PATIENT
  Age: 76 Year
  Sex: Male

DRUGS (3)
  1. SORTIS [Suspect]
     Active Substance: ATORVASTATIN
     Dosage: UNK
     Dates: start: 2004
  2. AMIODARONE [Concomitant]
     Active Substance: AMIODARONE
     Dosage: UNK
  3. MARCUMAR [Concomitant]
     Active Substance: PHENPROCOUMON
     Dosage: UNK

REACTIONS (4)
  - Muscle atrophy [Unknown]
  - Angiopathy [Unknown]
  - Myalgia [Unknown]
  - Renal function test abnormal [Unknown]
